FAERS Safety Report 10197640 (Version 1)
Quarter: 2014Q2

REPORT INFORMATION
  Report Type: Spontaneous
  Country: US (occurrence: US)
  Receive Date: 20140527
  Receipt Date: 20140527
  Transmission Date: 20141212
  Serious: No
  Sender: FDA-Public Use
  Company Number: US-NOVEN-14US009170

PATIENT
  Sex: Female

DRUGS (4)
  1. MINIVELLE [Suspect]
     Indication: HOT FLUSH
     Dosage: 0.05 MG, UNK
     Route: 062
  2. MINIVELLE [Suspect]
     Indication: MENOPAUSAL SYMPTOMS
  3. THYROID THERAPY [Concomitant]
  4. ANTI-ASTHMATICS [Concomitant]

REACTIONS (5)
  - Asthma [Recovered/Resolved]
  - Emotional disorder [Recovered/Resolved]
  - Irritability [Recovered/Resolved]
  - Hot flush [Recovered/Resolved]
  - Restlessness [Recovered/Resolved]
